FAERS Safety Report 9267867 (Version 1)
Quarter: 2013Q2

REPORT INFORMATION
  Report Type: Spontaneous
  Country: US (occurrence: US)
  Receive Date: 20130502
  Receipt Date: 20130502
  Transmission Date: 20140414
  Serious: No
  Sender: FDA-Public Use
  Company Number: US-ALEXION-A201201133

PATIENT
  Age: 57 Year
  Sex: Male

DRUGS (4)
  1. SOLIRIS 300MG [Suspect]
     Indication: PAROXYSMAL NOCTURNAL HAEMOGLOBINURIA
     Dosage: QW
     Route: 042
     Dates: start: 20120605
  2. BENADRYL [Suspect]
     Indication: PREMEDICATION
     Dosage: 50 MG, SINGLE
     Route: 042
     Dates: start: 20120605, end: 20120605
  3. PREDNISONE [Concomitant]
     Dosage: 200 ML UNK
  4. CYCLOSPORINE [Concomitant]
     Dosage: 200 ML UNK

REACTIONS (4)
  - Confusional state [Recovered/Resolved]
  - Joint stiffness [Recovered/Resolved]
  - Activities of daily living impaired [Recovered/Resolved]
  - Dizziness [Recovered/Resolved]
